FAERS Safety Report 4620618-0 (Version None)
Quarter: 2005Q1

REPORT INFORMATION
  Report Type: 
  Country: None (occurrence: None)
  Receive Date: 20050324
  Receipt Date: 20050316
  Transmission Date: 20050727
  Serious: Yes (Other)
  Sender: FDA-Public Use
  Company Number: 2004117930

PATIENT
  Sex: Male

DRUGS (1)
  1. CELEBREX [Suspect]
     Indication: OSTEOARTHRITIS
     Dosage: 200 MG (200 MG, 1 IN 1 D)
     Dates: end: 20041201

REACTIONS (4)
  - HIP ARTHROPLASTY [None]
  - KNEE ARTHROPLASTY [None]
  - SPINAL FUSION SURGERY [None]
  - SURGERY [None]
